FAERS Safety Report 23607429 (Version 2)
Quarter: 2024Q2

REPORT INFORMATION
  Report Type: Spontaneous
  Country: US (occurrence: None)
  Receive Date: 20240307
  Receipt Date: 20240409
  Transmission Date: 20240716
  Serious: No
  Sender: FDA-Public Use
  Company Number: 2024A054014

PATIENT
  Sex: Female

DRUGS (1)
  1. BUDESONIDE\FORMOTEROL [Suspect]
     Active Substance: BUDESONIDE\FORMOTEROL
     Dosage: UNKNOWN DOSE, UNKNOWN FREQUENCY UNKNOWN
     Route: 055

REACTIONS (3)
  - Dyspnoea [Unknown]
  - Device defective [Unknown]
  - Drug ineffective [Unknown]
